FAERS Safety Report 10955086 (Version 2)
Quarter: 2015Q2

REPORT INFORMATION
  Report Type: Spontaneous
  Country: US (occurrence: US)
  Receive Date: 20150325
  Receipt Date: 20150526
  Transmission Date: 20150821
  Serious: No
  Sender: FDA-Public Use
  Company Number: US-JNJFOC-20130508134

PATIENT
  Age: 80 Year
  Sex: Female

DRUGS (5)
  1. STATINS [Concomitant]
     Active Substance: UNSPECIFIED INGREDIENT
     Route: 065
  2. ASPIRIN. [Concomitant]
     Active Substance: ASPIRIN
     Route: 065
  3. NESIRITIDE [Suspect]
     Active Substance: NESIRITIDE
     Indication: CARDIAC FAILURE CONGESTIVE
     Route: 065
  4. LASIX [Concomitant]
     Active Substance: FUROSEMIDE
     Route: 065
  5. DOBUTAMINE [Concomitant]
     Active Substance: DOBUTAMINE\DOBUTAMINE HYDROCHLORIDE
     Route: 041

REACTIONS (1)
  - Pain in extremity [Unknown]
